FAERS Safety Report 6704501-2 (Version None)
Quarter: 2010Q2

REPORT INFORMATION
  Report Type: 
  Country: None (occurrence: None)
  Receive Date: 20100430
  Receipt Date: 20100419
  Transmission Date: 20101027
  Serious: Yes (Disabling, Other)
  Sender: FDA-Public Use
  Company Number: PHHY2010JP09484

PATIENT
  Age: 61 Year
  Sex: Female

DRUGS (2)
  1. ZOMETA [Suspect]
     Indication: METASTASES TO BONE
     Dosage: 4 MG
     Route: 042
     Dates: start: 20060720, end: 20081006
  2. TAXOTERE [Concomitant]
     Indication: BREAST CANCER
     Dosage: UNK
     Route: 042
     Dates: start: 20061030, end: 20081127

REACTIONS (9)
  - BONE DISORDER [None]
  - LOOSE TOOTH [None]
  - OEDEMA MOUTH [None]
  - OSTEONECROSIS [None]
  - PAIN IN JAW [None]
  - PATHOLOGICAL FRACTURE [None]
  - PERIODONTITIS [None]
  - QUALITY OF LIFE DECREASED [None]
  - TRISMUS [None]
